FAERS Safety Report 9684823 (Version 3)
Quarter: 2014Q1

REPORT INFORMATION
  Report Type: Report from Study
  Country: US (occurrence: US)
  Receive Date: 20131112
  Receipt Date: 20140131
  Transmission Date: 20141002
  Serious: Yes (Hospitalization, Other)
  Sender: FDA-Public Use
  Company Number: PHEH2013US023583

PATIENT
  Age: 45 Year
  Sex: Female
  Weight: 65.76 kg

DRUGS (7)
  1. GILENYA [Suspect]
     Indication: MULTIPLE SCLEROSIS
     Dosage: 0.5 MG, QD
     Route: 048
     Dates: start: 20130716, end: 201311
  2. ZOLOFT [Concomitant]
     Indication: DEPRESSION
  3. TOPAMAX [Concomitant]
     Indication: MIGRAINE
  4. AMBIEN [Concomitant]
     Indication: INSOMNIA
  5. B 12 [Concomitant]
  6. VITAMIN D [Concomitant]
  7. NORCO [Concomitant]
     Indication: MIGRAINE

REACTIONS (6)
  - Localised intraabdominal fluid collection [Recovering/Resolving]
  - White blood cell count decreased [Recovering/Resolving]
  - Klebsiella infection [Recovering/Resolving]
  - Liver function test abnormal [Recovering/Resolving]
  - Ovarian cyst [Recovering/Resolving]
  - Red cell distribution width increased [Recovering/Resolving]
